FAERS Safety Report 7390673-6 (Version None)
Quarter: 2011Q2

REPORT INFORMATION
  Report Type: 
  Country: None (occurrence: None)
  Receive Date: 20110404
  Receipt Date: 20110323
  Transmission Date: 20111010
  Serious: No
  Sender: FDA-Public Use
  Company Number: US-BIOGENIDEC-2011BI003533

PATIENT
  Sex: Female

DRUGS (1)
  1. TYSABRI [Suspect]
     Indication: MULTIPLE SCLEROSIS
     Route: 042
     Dates: start: 20101015

REACTIONS (9)
  - FEELING ABNORMAL [None]
  - NECK PAIN [None]
  - LOSS OF CONSCIOUSNESS [None]
  - BACK PAIN [None]
  - MENTAL DISORDER [None]
  - MEMORY IMPAIRMENT [None]
  - MUSCULOSKELETAL DISORDER [None]
  - DIZZINESS [None]
  - COORDINATION ABNORMAL [None]
